FAERS Safety Report 6483485-9 (Version None)
Quarter: 2009Q4

REPORT INFORMATION
  Report Type: 
  Country: None (occurrence: None)
  Receive Date: 20091209
  Receipt Date: 20090507
  Transmission Date: 20100525
  Serious: No
  Sender: FDA-Public Use
  Company Number: US-AMGEN-KDL345111

PATIENT
  Sex: Female

DRUGS (4)
  1. ENBREL [Suspect]
     Indication: RHEUMATOID ARTHRITIS
     Route: 058
     Dates: start: 20081124
  2. PREDNISONE [Suspect]
  3. METHOTREXATE [Concomitant]
  4. FOLIC ACID [Concomitant]

REACTIONS (1)
  - ACNE [None]
